FAERS Safety Report 19818357 (Version 1)
Quarter: 2021Q3

REPORT INFORMATION
  Report Type: Spontaneous
  Country: CA (occurrence: CA)
  Receive Date: 20210911
  Receipt Date: 20210911
  Transmission Date: 20211014
  Serious: Yes (Hospitalization)
  Sender: FDA-Public Use
  Company Number: CA-TEVA-2021-CA-1949613

PATIENT
  Age: 62 Year
  Sex: Female

DRUGS (14)
  1. VENTOLIN [Concomitant]
     Active Substance: ALBUTEROL SULFATE
  2. ALLOPURINOL. [Concomitant]
     Active Substance: ALLOPURINOL
  3. MULTIVITAMINE(S) [Concomitant]
     Active Substance: VITAMINS
  4. FOLIC ACID. [Concomitant]
     Active Substance: FOLIC ACID
  5. METFORMIN [Concomitant]
     Active Substance: METFORMIN HYDROCHLORIDE
  6. ETOPOSIDE INJECTION [Suspect]
     Active Substance: ETOPOSIDE
     Route: 065
  7. CARBOPLATIN INJECTION [Suspect]
     Active Substance: CARBOPLATIN
     Route: 065
  8. ATACAND PLUS [Concomitant]
     Active Substance: CANDESARTAN CILEXETIL\HYDROCHLOROTHIAZIDE
  9. OMEGA 3?6?9 [Concomitant]
     Active Substance: FISH OIL
  10. SYMBICORT [Concomitant]
     Active Substance: BUDESONIDE\FORMOTEROL FUMARATE DIHYDRATE
  11. HYDROMORPH CONTIN [Concomitant]
     Active Substance: HYDROMORPHONE
  12. HYDROMORPHONE [Concomitant]
     Active Substance: HYDROMORPHONE
  13. ROSUVASTATIN. [Concomitant]
     Active Substance: ROSUVASTATIN
  14. VITAMIN D [Concomitant]
     Active Substance: VITAMIN D NOS

REACTIONS (1)
  - Febrile neutropenia [Unknown]
